FAERS Safety Report 8088005-3 (Version None)
Quarter: 2012Q1

REPORT INFORMATION
  Report Type: 
  Country: None (occurrence: None)
  Receive Date: 20120128
  Receipt Date: 20110527
  Transmission Date: 20120608
  Serious: No
  Sender: FDA-Public Use
  Company Number: US-ABBOTT-11P-163-0728834-00

PATIENT
  Age: 46 Year
  Sex: Male

DRUGS (3)
  1. SINGULAIR [Concomitant]
     Indication: SEASONAL ALLERGY
  2. HUMIRA [Suspect]
     Indication: RHEUMATOID ARTHRITIS
     Route: 058
     Dates: start: 20110507
  3. FLONASE [Concomitant]
     Indication: SEASONAL ALLERGY

REACTIONS (1)
  - SINUS CONGESTION [None]
